FAERS Safety Report 5381277-5 (Version None)
Quarter: 2007Q3

REPORT INFORMATION
  Report Type: 
  Country: None (occurrence: None)
  Receive Date: 20070702
  Receipt Date: 20070214
  Transmission Date: 20080115
  Serious: Yes (Hospitalization)
  Sender: FDA-Public Use
  Company Number: SPV1-2007-00909

PATIENT
  Age: 15 Year
  Sex: Male

DRUGS (7)
  1. PENTASA [Suspect]
     Indication: CROHN'S DISEASE
     Dosage: 3 G DAILY, ORAL
     Route: 048
     Dates: start: 20060801, end: 20070101
  2. METRONIDAZOLE [Concomitant]
  3. FOLIC ACID [Concomitant]
  4. CIPROFLOXACIN [Concomitant]
  5. CACIT D3                 (CALCIUM CARBONATE, COLECALCIFEROL) [Concomitant]
  6. ACETAMINOPHEN [Concomitant]
  7. PREDNISOLONE SODIUM SULFOBENZOATE [Concomitant]

REACTIONS (1)
  - PERICARDITIS [None]
